FAERS Safety Report 24714513 (Version 1)
Quarter: 2024Q4

REPORT INFORMATION
  Report Type: Spontaneous
  Country: US (occurrence: US)
  Receive Date: 20241209
  Receipt Date: 20241209
  Transmission Date: 20250115
  Serious: No
  Sender: ABBVIE
  Company Number: US-ABBVIE-6033768

PATIENT
  Sex: Female

DRUGS (1)
  1. REFRESH TEARS PF [Suspect]
     Active Substance: CARBOXYMETHYLCELLULOSE SODIUM\GLYCERIN
     Indication: Product used for unknown indication
     Dosage: CMC 0.5% AND GLYCERIN 0.9% MDPF (MULTI-DOSE PRESERVATIVE FREE) FORM STRENGTH: 10 MILLILITRE
     Route: 047

REACTIONS (2)
  - Arthritis [Unknown]
  - Product delivery mechanism issue [Unknown]
